FAERS Safety Report 8270419-X (Version None)
Quarter: 2012Q2

REPORT INFORMATION
  Report Type: 
  Country: None (occurrence: None)
  Receive Date: 20120410
  Receipt Date: 20120403
  Transmission Date: 20120825
  Serious: Yes (Death, Hospitalization)
  Sender: FDA-Public Use
  Company Number: PHHY2011US53831

PATIENT
  Sex: Male

DRUGS (14)
  1. FLOMAX [Concomitant]
  2. INSULIN [Concomitant]
  3. ALBUTEROL [Concomitant]
     Dosage: PRN
  4. ATROVENT [Concomitant]
  5. FLEXERIL [Concomitant]
  6. NEXIUM [Concomitant]
  7. TOBI [Suspect]
     Dosage: 300 MG, BID FOR 28 DAYS ON THEN 28 DAYS OFF
     Dates: start: 20110501
  8. AVODART [Concomitant]
  9. XOPENEX [Concomitant]
  10. NEURONTIN [Concomitant]
  11. PREDNISONE TAB [Concomitant]
  12. TOBI [Suspect]
     Indication: BRONCHIECTASIS
     Dosage: 300 MG, BID FOR 28 DAYS ON THEN 28 DAYS OFF
     Dates: start: 20110422
  13. ADVAIR DISKUS 100/50 [Concomitant]
  14. NYSTATIN [Concomitant]

REACTIONS (4)
  - DEATH [None]
  - URINARY TRACT INFECTION [None]
  - PYREXIA [None]
  - THROMBOSIS [None]
